FAERS Safety Report 15098853 (Version 2)
Quarter: 2018Q3

REPORT INFORMATION
  Report Type: Spontaneous
  Country: GB (occurrence: GB)
  Receive Date: 20180702
  Receipt Date: 20180725
  Transmission Date: 20181010
  Serious: Yes (Other)
  Sender: FDA-Public Use
  Company Number: GB-PFIZER INC-2018261585

PATIENT
  Age: 70 Year
  Weight: 74 kg

DRUGS (3)
  1. OXALIPLATIN. [Concomitant]
     Active Substance: OXALIPLATIN
     Dosage: UNK
     Route: 065
  2. CAPECITABINE. [Concomitant]
     Active Substance: CAPECITABINE
     Dosage: UNK
     Route: 065
  3. PHENYTOIN. [Suspect]
     Active Substance: PHENYTOIN
     Dosage: 250 MG, DAILY
     Route: 065
     Dates: start: 2005

REACTIONS (2)
  - Electrocardiogram QRS complex prolonged [Unknown]
  - Bundle branch block right [Recovered/Resolved]
